FAERS Safety Report 14515377 (Version 1)
Quarter: 2018Q1

REPORT INFORMATION
  Report Type: Report from Study
  Country: US (occurrence: US)
  Receive Date: 20180210
  Receipt Date: 20180210
  Transmission Date: 20180509
  Serious: No
  Sender: FDA-Public Use
  Company Number: US-PUMA BIOTECHNOLOGY, LTD.-2017US014204

PATIENT

DRUGS (2)
  1. NERLYNX [Suspect]
     Active Substance: NERATINIB
     Indication: BREAST CANCER
     Dosage: 240MG, DAILY
     Route: 048
     Dates: start: 20171008, end: 20171016
  2. NERLYNX [Suspect]
     Active Substance: NERATINIB
     Dosage: 240 MG, DAILY
     Route: 048
     Dates: start: 20171106, end: 20171205

REACTIONS (7)
  - Rash generalised [Unknown]
  - Eye swelling [Unknown]
  - Acne [Unknown]
  - Eye pruritus [Unknown]
  - Ocular hyperaemia [Unknown]
  - Diarrhoea [Not Recovered/Not Resolved]
  - Klebsiella infection [Not Recovered/Not Resolved]
